FAERS Safety Report 8626049-0 (Version None)
Quarter: 2012Q3

REPORT INFORMATION
  Report Type: 
  Country: None (occurrence: None)
  Receive Date: 20120827
  Receipt Date: 20120823
  Transmission Date: 20120928
  Serious: Yes (Hospitalization, Other)
  Sender: FDA-Public Use
  Company Number: US-ABBOTT-12P-163-0972132-00

PATIENT
  Age: 68 Year
  Sex: Male

DRUGS (2)
  1. ANDROGEL [Suspect]
     Indication: BLOOD TESTOSTERONE DECREASED
     Dosage: PUMP
     Route: 061
     Dates: end: 20070101
  2. ANDROGEL [Suspect]
     Dosage: 2 PACKETS DAILY, UNKNOWN IF 2.5 G OR 5 G
     Route: 061
     Dates: start: 20110101

REACTIONS (2)
  - ROAD TRAFFIC ACCIDENT [None]
  - MULTIPLE FRACTURES [None]
